FAERS Safety Report 10309953 (Version 1)
Quarter: 2014Q3

REPORT INFORMATION
  Report Type: Spontaneous
  Country: US (occurrence: None)
  Receive Date: 20140715
  Receipt Date: 20140715
  Transmission Date: 20150326
  Serious: Yes (Other)
  Sender: FDA-Public Use
  Company Number: None

PATIENT
  Age: 73 Year
  Sex: Female
  Weight: 58.97 kg

DRUGS (7)
  1. TOPIRAMATE. [Suspect]
     Active Substance: TOPIRAMATE
     Indication: MIGRAINE
     Dosage: THERAPY ?JUNE 15?JULY -1ST
     Route: 048
  2. BUPROPION [Concomitant]
     Active Substance: BUPROPION
  3. BENEADRYL [Concomitant]
  4. TOPIRAMATE. [Suspect]
     Active Substance: TOPIRAMATE
     Indication: NEUROPATHY PERIPHERAL
     Dosage: THERAPY ?JUNE 15?JULY -1ST
     Route: 048
  5. SERTRALINE [Concomitant]
     Active Substance: SERTRALINE HYDROCHLORIDE
  6. HYDROCODONE/ACETAMINOPHEN [Concomitant]
     Active Substance: ACETAMINOPHEN\HYDROCODONE
  7. DIAZEPAM. [Concomitant]
     Active Substance: DIAZEPAM

REACTIONS (8)
  - Visual impairment [None]
  - Vertigo [None]
  - Decreased appetite [None]
  - Balance disorder [None]
  - Confusional state [None]
  - Eye pain [None]
  - Mental impairment [None]
  - Blindness unilateral [None]

NARRATIVE: CASE EVENT DATE: 20140615
